FAERS Safety Report 9601621 (Version 2)
Quarter: 2014Q1

REPORT INFORMATION
  Report Type: Spontaneous
  Country: US (occurrence: US)
  Receive Date: 20131007
  Receipt Date: 20140220
  Transmission Date: 20141002
  Serious: No
  Sender: FDA-Public Use
  Company Number: US-009507513-1310USA000900

PATIENT
  Sex: Male

DRUGS (4)
  1. PEGINTRON [Suspect]
     Indication: HEPATITIS C
     Dosage: 150 MICROGRAM, QW, REDIPEN
     Route: 058
     Dates: start: 201308
  2. REBETOL [Suspect]
     Route: 048
  3. AMBIEN [Concomitant]
  4. ZOLOFT [Concomitant]

REACTIONS (8)
  - Dysgeusia [Unknown]
  - Rash pruritic [Unknown]
  - Malaise [Unknown]
  - Product quality issue [Unknown]
  - Drug dose omission [Unknown]
  - Pain in extremity [Unknown]
  - Anger [Unknown]
  - Drug dose omission [Unknown]
